FAERS Safety Report 24462634 (Version 1)
Quarter: 2024Q4

REPORT INFORMATION
  Report Type: Spontaneous
  Country: AU (occurrence: AU)
  Receive Date: 20241018
  Receipt Date: 20241018
  Transmission Date: 20250115
  Serious: No
  Sender: MERCK
  Company Number: AU-009507513-2410AUS004150

PATIENT
  Age: 86 Year
  Sex: Female

DRUGS (1)
  1. LAGEVRIO [Suspect]
     Active Substance: MOLNUPIRAVIR
     Indication: COVID-19 treatment
     Dosage: 1 200 MG CAPSULE, FOUR TIMES A DAY
     Route: 048

REACTIONS (2)
  - Prescribed underdose [Unknown]
  - Product prescribing issue [Unknown]
